FAERS Safety Report 12543162 (Version 1)
Quarter: 2016Q3

REPORT INFORMATION
  Report Type: Spontaneous
  Country: US (occurrence: US)
  Receive Date: 20160711
  Receipt Date: 20160711
  Transmission Date: 20161109
  Serious: Yes (Other)
  Sender: FDA-Public Use
  Company Number: US-JNJCP-30000344172

PATIENT
  Sex: Male
  Weight: 109 kg

DRUGS (6)
  1. NEUTROGENA ULTRA SHEER DRY TOUCH SUNSCREEN BROAD SPECTRUM SPF85 PLUS [Suspect]
     Active Substance: AVOBENZONE\HOMOSALATE\OCTISALATE\OCTOCRYLENE\OXYBENZONE
     Indication: PROPHYLAXIS
     Dosage: SCANT AMOUNT, DAILY, ONCE IN THE MORNING
     Route: 061
  2. HIGH BLOOD PRESSURE MEDICATION (UNSPEC) [Concomitant]
     Indication: HYPERTENSION
     Dosage: THREE PER DAY SINCE YEARS
  3. DOVE SOAP [Concomitant]
  4. NEUTROGENA HEALTHY DEFENSE DAILY MOISTURIZER SPF 50 WITH HELIOPLEX [Suspect]
     Active Substance: AVOBENZONE\HOMOSALATE\OCTISALATE\OCTOCRYLENE\OXYBENZONE
     Indication: PROPHYLAXIS
     Dosage: SCANT AMOUNT, OCCASIONALLY
     Route: 061
  5. WATER PILL (UNSPEC) [Concomitant]
     Dosage: ONE PER DAY, SINCE YEARS
  6. SAFEGUARD SOAP [Concomitant]
     Dosage: SINCE YEARS

REACTIONS (3)
  - Melanocytic naevus [Not Recovered/Not Resolved]
  - Application site warmth [Not Recovered/Not Resolved]
  - Skin lesion [Not Recovered/Not Resolved]

NARRATIVE: CASE EVENT DATE: 2016
